FAERS Safety Report 8617490 (Version 2)
Quarter: 2014Q1

REPORT INFORMATION
  Report Type: Spontaneous
  Country: US (occurrence: None)
  Receive Date: 20120323
  Receipt Date: 20130305
  Transmission Date: 20141002
  Serious: Yes (Life-Threatening, Other)
  Sender: FDA-Public Use
  Company Number: 163-21880-11112569

PATIENT
  Age: 70 Year
  Sex: Female
  Weight: 98.88 kg

DRUGS (9)
  1. REVLIMID [Suspect]
     Indication: PLASMA CELL MYELOMA
     Dosage: 25 MG, 1 IN 1 D, PO, 10 MG, 21 DAYS ON 7 OFF, PO
     Route: 048
     Dates: start: 20111013
  2. AMLODIPINE [Concomitant]
  3. CELEXA (CITALOPRAM HYDROBROMIDE) [Concomitant]
  4. CHROMAGEN FORTE (ANEMIDOX FERRUM) [Concomitant]
  5. GLIPIZIDE [Concomitant]
  6. LISINOPRIL [Concomitant]
  7. METOPROLOL [Concomitant]
  8. NITROSTAT (GLYCERYL TRINITRATE) [Concomitant]
  9. RANITIDINE [Concomitant]

REACTIONS (4)
  - Deep vein thrombosis [None]
  - Blood creatinine increased [None]
  - Blood potassium decreased [None]
  - Blood magnesium decreased [None]
